FAERS Safety Report 9201835 (Version 3)
Quarter: 2013Q3

REPORT INFORMATION
  Report Type: Spontaneous
  Country: US (occurrence: None)
  Receive Date: 20130328
  Receipt Date: 20130924
  Transmission Date: 20140515
  Serious: Yes (Hospitalization, Other)
  Sender: FDA-Public Use
  Company Number: 2012-003352

PATIENT
  Age: 68 Year
  Sex: Female

DRUGS (26)
  1. ACTONEL [Suspect]
     Indication: OSTEOPOROSIS
     Route: 048
     Dates: start: 20020417
  2. ACTONEL [Suspect]
     Indication: OSTEOPOROSIS PROPHYLAXIS
     Route: 048
     Dates: start: 20020417
  3. ACTONEL [Suspect]
     Indication: OSTEOPENIA
     Route: 048
     Dates: start: 20020417
  4. FOSAMAX (ALENDRONATE SODIUM) [Suspect]
     Route: 048
     Dates: start: 19991201, end: 20020417
  5. FOSAMAX (ALENDRONATE SODIUM) [Suspect]
     Route: 048
     Dates: start: 19991201, end: 20020417
  6. FOSAMAX (ALENDRONATE SODIUM) [Suspect]
     Route: 048
     Dates: start: 19991201, end: 20020417
  7. ASPIRIN [Concomitant]
  8. ATENOLOL (ATENOLOL) [Concomitant]
  9. ZOCOR [Concomitant]
  10. LEVOTHYROXINE [Concomitant]
  11. CELEBREX [Concomitant]
  12. HYDROCONDONE (HYDROCODONE) [Concomitant]
  13. PROPOXYPHENE N/APAP [Concomitant]
  14. HYDROCODONE W/ACETAMINOPHEN (HYDROCODONE BITARTRATE, PARACETAMOL) [Concomitant]
  15. STAFLEX [Concomitant]
  16. MIRALAX [Concomitant]
  17. XANAX [Concomitant]
     Dates: start: 2001, end: 200204
  18. XANAX [Concomitant]
     Dates: start: 2001, end: 200204
  19. XANAX [Concomitant]
     Dates: start: 2001, end: 200204
  20. CLARITIN [Concomitant]
  21. RHINOCORT AQUA (BUDESONIDE) [Concomitant]
  22. ALBUTEROL [Concomitant]
  23. CALCIUM (CALCIUM) [Concomitant]
  24. VITAMIN D [Concomitant]
  25. MULTIVITAMIN [Concomitant]
  26. OCUVITE [Concomitant]

REACTIONS (11)
  - Femur fracture [None]
  - Fall [None]
  - Pathological fracture [None]
  - Pain in extremity [None]
  - Bone disorder [None]
  - Stress fracture [None]
  - Low turnover osteopathy [None]
  - Pain [None]
  - Multiple fractures [None]
  - Femur fracture [None]
  - Comminuted fracture [None]
